FAERS Safety Report 14448504 (Version 2)
Quarter: 2018Q1

REPORT INFORMATION
  Report Type: Spontaneous
  Country: US (occurrence: US)
  Receive Date: 20180126
  Receipt Date: 20180322
  Transmission Date: 20180509
  Serious: Yes (Death, Hospitalization, Other)
  Sender: FDA-Public Use
  Company Number: US-GLAXOSMITHKLINE-US2018011270

PATIENT
  Sex: Male
  Weight: 113.38 kg

DRUGS (5)
  1. ALBUTEROL. [Concomitant]
     Active Substance: ALBUTEROL
  2. LISINOPRIL. [Concomitant]
     Active Substance: LISINOPRIL
  3. ANORO ELLIPTA [Suspect]
     Active Substance: UMECLIDINIUM BROMIDE\VILANTEROL TRIFENATATE
     Indication: CHRONIC OBSTRUCTIVE PULMONARY DISEASE
     Dosage: 1 PUFF(S), QD
     Route: 055
  4. CYMBALTA [Concomitant]
     Active Substance: DULOXETINE HYDROCHLORIDE
  5. OXYGEN. [Concomitant]
     Active Substance: OXYGEN

REACTIONS (13)
  - Sepsis [Fatal]
  - Abnormal behaviour [Fatal]
  - Groin infection [Fatal]
  - Anal incontinence [Fatal]
  - Gout [Unknown]
  - Pneumonia [Fatal]
  - Cardiac failure [Fatal]
  - Injury associated with device [Unknown]
  - Pulmonary congestion [Unknown]
  - Renal failure [Fatal]
  - Aspiration [Unknown]
  - Urinary incontinence [Fatal]
  - Weight decreased [Unknown]
